FAERS Safety Report 8225522-7 (Version None)
Quarter: 2012Q1

REPORT INFORMATION
  Report Type: 
  Country: None (occurrence: None)
  Receive Date: 20120321
  Receipt Date: 20120315
  Transmission Date: 20120608
  Serious: No
  Sender: FDA-Public Use
  Company Number: US-JNJFOC-20120308701

PATIENT
  Sex: Female
  Weight: 110.68 kg

DRUGS (4)
  1. UNKNOWN MEDICATION [Concomitant]
     Indication: BLOOD CHOLESTEROL INCREASED
     Dosage: HALF TABLET DAILY
     Route: 048
  2. INVEGA [Suspect]
     Indication: BIPOLAR I DISORDER
     Route: 048
     Dates: start: 20100208
  3. DESYREL (TRAZADONE HCL) [Concomitant]
     Indication: SLEEP DISORDER
     Route: 048
  4. AMBIEN [Concomitant]
     Indication: SLEEP DISORDER
     Route: 048

REACTIONS (4)
  - DROOLING [None]
  - SALIVARY HYPERSECRETION [None]
  - TREMOR [None]
  - HYPOAESTHESIA [None]
